FAERS Safety Report 18739353 (Version 1)
Quarter: 2021Q1

REPORT INFORMATION
  Report Type: Spontaneous
  Country: US (occurrence: US)
  Receive Date: 20210113
  Receipt Date: 20210113
  Transmission Date: 20210419
  Serious: No
  Sender: FDA-Public Use
  Company Number: None

PATIENT
  Age: 71 Year
  Sex: Female
  Weight: 81.6 kg

DRUGS (8)
  1. SYMBICORT [Concomitant]
     Active Substance: BUDESONIDE\FORMOTEROL FUMARATE DIHYDRATE
     Dates: start: 20210110
  2. ENOXAPARIN 40 MG SC DAILY [Concomitant]
     Dates: start: 20210111
  3. METOPROLOL XL 200MG DAILY [Concomitant]
     Dates: start: 20210111
  4. REMDESIVIR. [Suspect]
     Active Substance: REMDESIVIR
     Indication: COVID-19
     Dosage: ?          OTHER FREQUENCY:ONCE;?
     Route: 041
     Dates: start: 20210112
  5. DEXAMETHASONE 6 MG IV DAILY [Concomitant]
     Dates: start: 20210113
  6. FLORASTOR 250 MG DAILY [Concomitant]
     Dates: start: 20210111
  7. CETIRIZINE 10 MG PO [Concomitant]
     Dates: start: 20210111
  8. INSULIN GLARGINE 10 UNITS SC DAILY [Concomitant]
     Dates: start: 20210111

REACTIONS (1)
  - Infusion site extravasation [None]

NARRATIVE: CASE EVENT DATE: 20210112
